FAERS Safety Report 8760783 (Version 5)
Quarter: 2014Q1

REPORT INFORMATION
  Report Type: Spontaneous
  Country: US (occurrence: US)
  Receive Date: 20120830
  Receipt Date: 20140106
  Transmission Date: 20141002
  Serious: Yes (Hospitalization, Other)
  Sender: FDA-Public Use
  Company Number: US-BIOGENIDEC-2012BI033952

PATIENT
  Age: 43 Year
  Sex: Female

DRUGS (4)
  1. AVONEX [Suspect]
     Indication: MULTIPLE SCLEROSIS
     Route: 030
  2. AVONEX [Suspect]
     Indication: MULTIPLE SCLEROSIS
     Route: 030
     Dates: start: 20120720, end: 20121207
  3. TYSABRI [Concomitant]
     Indication: MULTIPLE SCLEROSIS
     Route: 042
     Dates: start: 20070607, end: 20100903
  4. TYSABRI [Concomitant]
     Indication: MULTIPLE SCLEROSIS
     Route: 042
     Dates: start: 20120316, end: 20120316

REACTIONS (5)
  - Decubitus ulcer [Recovered/Resolved]
  - Impaired healing [Recovered/Resolved]
  - Osteomyelitis [Unknown]
  - Multiple sclerosis relapse [Recovered/Resolved with Sequelae]
  - Urinary tract infection [Recovered/Resolved]
